FAERS Safety Report 7307830-7 (Version None)
Quarter: 2011Q1

REPORT INFORMATION
  Report Type: 
  Country: None (occurrence: None)
  Receive Date: 20110223
  Receipt Date: 20110211
  Transmission Date: 20110831
  Serious: Yes (Hospitalization, Other)
  Sender: FDA-Public Use
  Company Number: US-ELI_LILLY_AND_COMPANY-US201102003442

PATIENT
  Sex: Female

DRUGS (6)
  1. HUMALOG [Suspect]
     Indication: DIABETES MELLITUS
  2. NOVOLOG [Concomitant]
  3. HUMULIN N [Suspect]
     Dosage: 20 MG, 2/D
  4. HUMALOG [Suspect]
  5. HUMULIN N [Suspect]
     Indication: DIABETES MELLITUS
     Dosage: 20 MG, EACH MORNING
  6. HUMULIN N [Suspect]
     Dosage: 15 MG, EACH EVENING

REACTIONS (6)
  - DIABETIC KETOACIDOSIS [None]
  - VOMITING [None]
  - DYSMENORRHOEA [None]
  - DRUG DOSE OMISSION [None]
  - NAUSEA [None]
  - GLYCOSYLATED HAEMOGLOBIN INCREASED [None]
